FAERS Safety Report 9447662 (Version 1)
Quarter: 2013Q3

REPORT INFORMATION
  Report Type: Spontaneous
  Country: US (occurrence: US)
  Receive Date: 20130808
  Receipt Date: 20130808
  Transmission Date: 20140515
  Serious: Yes (Other)
  Sender: FDA-Public Use
  Company Number: US-JNJFOC-20130801424

PATIENT
  Sex: 0

DRUGS (6)
  1. PANCRELIPASE [Suspect]
     Indication: PANCREATITIS
     Route: 065
  2. PANCRELIPASE [Suspect]
     Indication: CYSTIC FIBROSIS
     Route: 065
  3. PANCRELIPASE [Suspect]
     Indication: PANCREATIC DISORDER
     Route: 065
  4. PANCRELIPASE [Suspect]
     Indication: PANCREATITIS
     Route: 065
  5. PANCRELIPASE [Suspect]
     Indication: CYSTIC FIBROSIS
     Route: 065
  6. PANCRELIPASE [Suspect]
     Indication: PANCREATIC DISORDER
     Route: 065

REACTIONS (12)
  - Intestinal haemorrhage [Unknown]
  - Intestinal obstruction [Unknown]
  - Colitis [Unknown]
  - Intestinal ulcer [Unknown]
  - Diverticulitis [Unknown]
  - Ileus [Unknown]
  - Anorectal disorder [Unknown]
  - Large intestine polyp [Unknown]
  - Diarrhoea [Unknown]
  - Constipation [Unknown]
  - Abnormal faeces [Unknown]
  - Defaecation urgency [Unknown]
